FAERS Safety Report 15609656 (Version 1)
Quarter: 2018Q4

REPORT INFORMATION
  Report Type: Spontaneous
  Country: SE (occurrence: SE)
  Receive Date: 20181113
  Receipt Date: 20181113
  Transmission Date: 20190205
  Serious: Yes (Life-Threatening, Other)
  Sender: FDA-Public Use
  Company Number: SE-BRISTOL-MYERS SQUIBB COMPANY-BMS-2018-103616

PATIENT
  Age: 69 Year
  Sex: Male

DRUGS (1)
  1. ORENCIA [Suspect]
     Active Substance: ABATACEPT
     Indication: POLYARTHRITIS
     Dosage: 125 MG, UNK
     Route: 065

REACTIONS (2)
  - Product use in unapproved indication [Unknown]
  - Metastases to lung [Recovered/Resolved]

NARRATIVE: CASE EVENT DATE: 20180619
